FAERS Safety Report 6539284-2 (Version None)
Quarter: 2010Q1

REPORT INFORMATION
  Report Type: 
  Country: None (occurrence: None)
  Receive Date: 20100115
  Receipt Date: 20100108
  Transmission Date: 20100710
  Serious: Yes (Hospitalization)
  Sender: FDA-Public Use
  Company Number: US-JNJFOC-20100103558

PATIENT
  Age: 31 Year
  Sex: Female
  Weight: 76.2 kg

DRUGS (3)
  1. FENTANYL CITRATE [Suspect]
     Indication: ABDOMINAL PAIN
     Dosage: 100+ 50 UG/HR PATCH
     Route: 062
  2. DURAGESIC-100 [Suspect]
     Indication: ABDOMINAL PAIN
     Dosage: 100 UG/HR+50 UG/HR
     Route: 062
  3. UNKNOWN MEDICATION [Concomitant]
     Route: 065

REACTIONS (2)
  - HOSPITALISATION [None]
  - WRONG TECHNIQUE IN DRUG USAGE PROCESS [None]
